FAERS Safety Report 10250098 (Version 1)
Quarter: 2014Q2

REPORT INFORMATION
  Report Type: Spontaneous
  Country: US (occurrence: US)
  Receive Date: 20140620
  Receipt Date: 20140620
  Transmission Date: 20141212
  Serious: Yes (Hospitalization)
  Sender: FDA-Public Use
  Company Number: US-BRISTOL-MYERS SQUIBB COMPANY-20662573

PATIENT
  Age: 58 Year
  Sex: Female

DRUGS (5)
  1. ELIQUIS [Suspect]
     Route: 048
     Dates: start: 201403
  2. CARVEDILOL [Concomitant]
  3. DIGOXIN [Concomitant]
  4. FUROSEMIDE [Concomitant]
  5. NORCO [Concomitant]
     Dosage: 1 DF=5/325

REACTIONS (1)
  - Rash papular [Unknown]
